FAERS Safety Report 10137562 (Version 2)
Quarter: 2014Q2

REPORT INFORMATION
  Report Type: Spontaneous
  Country: IT (occurrence: IT)
  Receive Date: 20140429
  Receipt Date: 20140625
  Transmission Date: 20141212
  Serious: Yes (Hospitalization, Other)
  Sender: FDA-Public Use
  Company Number: IT-AMGEN-ITASP2014030560

PATIENT
  Age: 59 Year
  Sex: Male

DRUGS (14)
  1. ENBREL [Suspect]
     Indication: RHEUMATOID ARTHRITIS
     Dosage: 50 MG, WEEKLY
     Route: 058
     Dates: start: 20120601, end: 20130226
  2. LANSOPRAZOLE [Concomitant]
     Dosage: 15 MG, UNK
     Route: 048
  3. METHOTREXATE [Concomitant]
     Dosage: 2.5 MG, UNK
     Route: 048
  4. FOLINA                             /00024201/ [Concomitant]
     Dosage: 5 MG, UNK
     Route: 048
  5. MEDROL                             /00049601/ [Concomitant]
     Dosage: 4 MG, UNK
     Route: 048
  6. CARDIOASPIRIN [Concomitant]
     Dosage: 100 MG, UNK
     Route: 048
  7. TRIATEC HCT [Concomitant]
     Dosage: 30 MG, UNK
     Route: 048
  8. NORVASC [Concomitant]
     Dosage: 10 MG, UNK
     Route: 048
  9. CATAPRESAN                         /00171101/ [Concomitant]
     Dosage: UNK
     Route: 062
  10. CARBOLITHIUM [Concomitant]
     Dosage: 150 MG, UNK
     Route: 048
  11. HALCION [Concomitant]
     Dosage: 250 UG, UNK
     Route: 048
  12. DIBASE [Concomitant]
     Dosage: 25 GTT, UNK
     Route: 048
  13. TACHIPIRINA [Concomitant]
     Dosage: UNK
     Route: 048
  14. OPTINATE [Concomitant]
     Dosage: 35 MG, UNK
     Route: 048

REACTIONS (3)
  - Epilepsy [Not Recovered/Not Resolved]
  - Meningitis aseptic [Not Recovered/Not Resolved]
  - Multiple fractures [Not Recovered/Not Resolved]
